FAERS Safety Report 26132533 (Version 1)
Quarter: 2025Q4

REPORT INFORMATION
  Report Type: Spontaneous
  Country: US (occurrence: US)
  Receive Date: 20251208
  Receipt Date: 20251208
  Transmission Date: 20260118
  Serious: No
  Sender: BIOMARIN
  Company Number: US-BIOMARINAP-US-2025-170364

PATIENT
  Sex: Male

DRUGS (1)
  1. NAGLAZYME [Suspect]
     Active Substance: GALSULFASE
     Indication: Product used for unknown indication
     Dosage: UNK

REACTIONS (2)
  - Rhinorrhoea [Unknown]
  - Cough [Unknown]
